FAERS Safety Report 8902362 (Version 3)
Quarter: 2013Q1

REPORT INFORMATION
  Report Type: Spontaneous
  Country: JP (occurrence: JP)
  Receive Date: 20121112
  Receipt Date: 20130314
  Transmission Date: 20140127
  Serious: Yes (Hospitalization, Other)
  Sender: FDA-Public Use
  Company Number: CN-ASTELLAS-2012US010923

PATIENT
  Age: 64 Year
  Sex: Female
  Weight: 44 kg

DRUGS (16)
  1. TARCEVA [Suspect]
     Indication: ADENOCARCINOMA PANCREAS
     Dosage: 100 MG, UID/QD
     Route: 048
     Dates: start: 20120905, end: 20121010
  2. GEMCITABINE [Suspect]
     Indication: ADENOCARCINOMA PANCREAS
     Dosage: UNK
     Route: 041
     Dates: start: 20120905, end: 20121003
  3. LOXONIN [Concomitant]
     Indication: PAIN
     Dosage: 60 MEQ/ML, TID
     Route: 048
     Dates: start: 20120828
  4. HIRUDOID                           /00723701/ [Concomitant]
     Indication: DERMATITIS ACNEIFORM
     Dosage: UNK
     Route: 003
     Dates: start: 20120904, end: 20121010
  5. MYSER                              /00115501/ [Concomitant]
     Indication: DERMATITIS ACNEIFORM
     Dosage: UNK
     Route: 003
     Dates: start: 20120904, end: 20121010
  6. VITAMIIN A [Concomitant]
     Indication: DERMATITIS ACNEIFORM
     Dosage: UNK
     Route: 003
     Dates: start: 20120904, end: 20121010
  7. OINTMENT BASIS [Concomitant]
     Indication: DERMATITIS ACNEIFORM
     Dosage: UNK
     Route: 003
     Dates: start: 20120904, end: 20121010
  8. RINDERON VG [Concomitant]
     Indication: DERMATITIS ACNEIFORM
     Dosage: UNK
     Route: 003
     Dates: start: 20120907, end: 20121010
  9. DECADRON                           /00016001/ [Concomitant]
     Indication: NAUSEA
     Dosage: 1 MG, UID/QD
     Route: 048
     Dates: start: 20120913, end: 20120915
  10. DECADRON                           /00016001/ [Concomitant]
     Dosage: 1 MG, UID/QD
     Route: 048
     Dates: start: 20120919, end: 20120921
  11. DECADRON                           /00016001/ [Concomitant]
     Dosage: 1 MG, UID/QD
     Route: 048
     Dates: start: 20121004, end: 20121006
  12. NEXIUM                             /01479302/ [Concomitant]
     Indication: PROPHYLAXIS AGAINST GASTROINTESTINAL ULCER
     Dosage: 20 MG, UID/QD
     Route: 048
     Dates: start: 20121010
  13. SOLU-CORTEF [Concomitant]
     Indication: PRODUCT USED FOR UNKNOWN INDICATION
     Dosage: UNK
     Route: 042
  14. SEROTONE [Concomitant]
     Indication: PRODUCT USED FOR UNKNOWN INDICATION
     Dosage: UNK
     Route: 042
  15. CONIEL [Concomitant]
     Indication: PRODUCT USED FOR UNKNOWN INDICATION
     Dosage: UNK
     Route: 048
  16. LIPITOR [Concomitant]
     Indication: PRODUCT USED FOR UNKNOWN INDICATION
     Dosage: UNK
     Route: 048

REACTIONS (6)
  - Pleural effusion [Recovering/Resolving]
  - Dyspnoea [Recovering/Resolving]
  - Nausea [Unknown]
  - Malignant pleural effusion [Unknown]
  - Jaundice cholestatic [Unknown]
  - Lymphangiosis carcinomatosa [Unknown]
